FAERS Safety Report 6328186-2 (Version None)
Quarter: 2009Q3

REPORT INFORMATION
  Report Type: 
  Country: None (occurrence: None)
  Receive Date: 20090825
  Receipt Date: 20090212
  Transmission Date: 20100115
  Serious: No
  Sender: FDA-Public Use
  Company Number: US-ABBOTT-08P-163-0494512-00

PATIENT
  Sex: Female
  Weight: 65.83 kg

DRUGS (5)
  1. SYNTHROID [Suspect]
     Indication: HYPOTHYROIDISM
     Dates: start: 20080801
  2. SYNTHROID [Suspect]
     Dates: start: 20060201, end: 20080801
  3. GABAPENTIN [Concomitant]
     Indication: CONVULSION
     Dosage: 600 MG - TAKE 1/2 TAB TID DURING OVULATION CYCLE.
     Dates: start: 20080601
  4. PREGNANCY VITAMIN OTC [Concomitant]
     Indication: VITAMIN SUPPLEMENTATION
  5. VITAMIN D [Concomitant]
     Indication: VITAMIN SUPPLEMENTATION

REACTIONS (1)
  - MALNUTRITION [None]
